FAERS Safety Report 24870681 (Version 1)
Quarter: 2025Q1

REPORT INFORMATION
  Report Type: Spontaneous
  Country: JP (occurrence: JP)
  Receive Date: 20250121
  Receipt Date: 20250121
  Transmission Date: 20250408
  Serious: Yes (Hospitalization, Other)
  Sender: RANBAXY
  Company Number: JP-SUN PHARMACEUTICAL INDUSTRIES LTD-2024RR-488974

PATIENT
  Age: 18 Month

DRUGS (1)
  1. LEVETIRACETAM [Suspect]
     Active Substance: LEVETIRACETAM
     Indication: Seizure
     Dosage: 30 MILLIGRAM/KILOGRAM, DAILY
     Route: 065

REACTIONS (4)
  - Disease recurrence [Unknown]
  - Loss of consciousness [Unknown]
  - Encephalopathy [Unknown]
  - Drug ineffective [Unknown]
